FAERS Safety Report 8172168-5 (Version None)
Quarter: 2012Q1

REPORT INFORMATION
  Report Type: 
  Country: None (occurrence: None)
  Receive Date: 20120228
  Receipt Date: 20120224
  Transmission Date: 20120608
  Serious: Yes (Death, Hospitalization)
  Sender: FDA-Public Use
  Company Number: CN-ASTRAZENECA-2012SE12999

PATIENT
  Age: 77 Year
  Sex: Male

DRUGS (7)
  1. METOPROLOL SUCCINATE [Suspect]
     Route: 048
  2. ASPIRIN [Suspect]
     Route: 048
  3. ATORVASTATIN CALCIUM [Suspect]
     Route: 048
  4. ATENOLOL AND CHLORTHALIDONE [Suspect]
     Route: 048
  5. ESOMEPRAZOLE MAGNESIUM [Suspect]
     Indication: CARDIOVASCULAR DISORDER
     Route: 048
  6. IRBESARTAN [Suspect]
     Route: 048
  7. AMLODIPINE BESYLATE [Suspect]
     Route: 048

REACTIONS (2)
  - LICHENOID KERATOSIS [None]
  - CARDIAC DISORDER [None]
